FAERS Safety Report 16786436 (Version 1)
Quarter: 2019Q3

REPORT INFORMATION
  Report Type: Spontaneous
  Country: FR (occurrence: FR)
  Receive Date: 20190909
  Receipt Date: 20190909
  Transmission Date: 20191005
  Serious: Yes (Other)
  Sender: FDA-Public Use
  Company Number: FR-PFIZER INC-2019381503

PATIENT
  Age: 48 Year
  Sex: Female
  Weight: 63 kg

DRUGS (3)
  1. IRINOTECAN HCL [Suspect]
     Active Substance: IRINOTECAN HYDROCHLORIDE
     Indication: ADENOCARCINOMA OF COLON
     Dosage: 320 MG, EVERY 2 WEEKS
     Route: 042
     Dates: start: 20190605
  2. OXALIPLATIN ACCORD [Suspect]
     Active Substance: OXALIPLATIN
     Indication: ADENOCARCINOMA OF COLON
     Dosage: 150 MG, EVERY 2 WEEKS
     Route: 042
     Dates: start: 20190605, end: 20190716
  3. FLUOROURACIL ACCORD [FLUOROURACIL] [Suspect]
     Active Substance: FLUOROURACIL SODIUM
     Indication: ADENOCARCINOMA OF COLON
     Dosage: 4900 MG, EVERY 2 WEEKS
     Route: 042
     Dates: start: 20190605

REACTIONS (3)
  - Diarrhoea [Recovered/Resolved]
  - Neuropathy peripheral [Recovered/Resolved]
  - Vomiting [Recovered/Resolved]

NARRATIVE: CASE EVENT DATE: 201906
